FAERS Safety Report 7046493-5 (Version None)
Quarter: 2010Q4

REPORT INFORMATION
  Report Type: 
  Country: None (occurrence: None)
  Receive Date: 20101014
  Receipt Date: 20101002
  Transmission Date: 20110411
  Serious: Yes (Other)
  Sender: FDA-Public Use
  Company Number: PHHY2010CA65639

PATIENT
  Sex: Female

DRUGS (2)
  1. ACLASTA [Suspect]
     Indication: OSTEOPOROSIS
     Dosage: 5MG
     Dates: start: 20081028
  2. ACLASTA [Suspect]
     Dosage: UNK
     Dates: start: 20091028

REACTIONS (3)
  - FALL [None]
  - PRURITUS [None]
  - SPINAL FRACTURE [None]
